FAERS Safety Report 8846222 (Version 1)
Quarter: 2012Q4

REPORT INFORMATION
  Report Type: 
  Country: IT (occurrence: IT)
  Receive Date: 20121017
  Receipt Date: 20121017
  Transmission Date: 20130627
  Serious: Yes (Hospitalization)
  Sender: FDA-Public Use
  Company Number: IT-JNJFOC-20121000222

PATIENT
  Age: 44 Year
  Sex: Female

DRUGS (1)
  1. XEPLION [Suspect]
     Indication: SCHIZOPHRENIA
     Route: 030
     Dates: start: 20120724, end: 20120924

REACTIONS (4)
  - Urticaria [Recovered/Resolved]
  - Induration [Recovered/Resolved]
  - Erythema [Recovered/Resolved]
  - Injection site nodule [Recovered/Resolved]
